FAERS Safety Report 7545981-2 (Version None)
Quarter: 2011Q2

REPORT INFORMATION
  Report Type: 
  Country: None (occurrence: None)
  Receive Date: 20110614
  Receipt Date: 20110609
  Transmission Date: 20111010
  Serious: Yes (Other)
  Sender: FDA-Public Use
  Company Number: US-PFIZER INC-2011126515

PATIENT
  Sex: Female
  Weight: 56.7 kg

DRUGS (3)
  1. LYRICA [Suspect]
     Indication: VULVOVAGINAL PAIN
     Dosage: 50 MG, DAILY
     Route: 048
     Dates: start: 20110501, end: 20110604
  2. SPIRONOLACTONE [Concomitant]
     Dosage: UNK
     Dates: start: 20090101
  3. DOXYCYCLINE [Concomitant]
     Dosage: UNK
     Dates: start: 20090101

REACTIONS (2)
  - DYSPNOEA [None]
  - PALPITATIONS [None]
